FAERS Safety Report 8176147-3 (Version None)
Quarter: 2012Q1

REPORT INFORMATION
  Report Type: 
  Country: None (occurrence: None)
  Receive Date: 20120301
  Receipt Date: 20120223
  Transmission Date: 20120608
  Serious: Yes (Other)
  Sender: FDA-Public Use
  Company Number: US-NAPPMUNDI-USA-2012-0082829

PATIENT
  Sex: Female

DRUGS (3)
  1. OXYCONTIN [Suspect]
     Indication: PRODUCT USED FOR UNKNOWN INDICATION
     Dosage: 80 MG, BID
  2. MS CONTIN [Suspect]
     Indication: PRODUCT USED FOR UNKNOWN INDICATION
     Dosage: 100 MG, TID
  3. OXYCONTIN [Suspect]
     Dosage: 160 MG, SEE TEXT

REACTIONS (4)
  - DRUG EFFECT DECREASED [None]
  - MYOCARDIAL INFARCTION [None]
  - ABDOMINAL DISCOMFORT [None]
  - INTENTIONAL DRUG MISUSE [None]
